FAERS Safety Report 5106673-2 (Version None)
Quarter: 2006Q3

REPORT INFORMATION
  Report Type: 
  Country: None (occurrence: None)
  Receive Date: 20060731
  Receipt Date: 20050726
  Transmission Date: 20061208
  Serious: Yes (Hospitalization)
  Sender: FDA-Public Use
  Company Number: US-JNJFOC-20050605847

PATIENT
  Age: 47 Year
  Sex: Male
  Weight: 77 kg

DRUGS (7)
  1. RISPERDAL [Suspect]
     Indication: SCHIZOPHRENIA
     Dosage: 6 MG , IN 1 DAY
     Dates: start: 20050401, end: 20050512
  2. BIFEPRUNOX (ANTIPSYCHOTICS) [Suspect]
     Indication: SCHIZOPHRENIA
     Dates: start: 20050401, end: 20050512
  3. PLACEBO (PLACEBO) [Suspect]
     Indication: SCHIZOPHRENIA
     Dates: start: 20050401, end: 20050512
  4. TYLENOL (UNSPECIFIED) ACETAMINOPHEN [Concomitant]
  5. ATIVAN [Concomitant]
  6. AMBIEN [Concomitant]
  7. ZYPREXA [Concomitant]

REACTIONS (1)
  - PSYCHOTIC DISORDER [None]
